FAERS Safety Report 4346646-0 (Version None)
Quarter: 2004Q2

REPORT INFORMATION
  Report Type: 
  Country: None (occurrence: None)
  Receive Date: 20040426
  Receipt Date: 20040419
  Transmission Date: 20050107
  Serious: Yes (Death, Other)
  Sender: FDA-Public Use
  Company Number: US-BRISTOL-MYERS SQUIBB COMPANY-12568564

PATIENT
  Age: 77 Year
  Sex: Female
  Weight: 61 kg

DRUGS (8)
  1. GATIFLOXACIN IV [Suspect]
     Indication: URINARY TRACT INFECTION
     Route: 042
  2. FUROSEMIDE [Concomitant]
  3. RABEPRAZOLE SODIUM [Concomitant]
  4. SIMVASTATIN [Concomitant]
  5. METOPROLOL [Concomitant]
  6. CLOPIDOGREL BISULFATE [Concomitant]
  7. CAPTOPRIL [Concomitant]
  8. METOLAZONE [Concomitant]

REACTIONS (2)
  - DEATH [None]
  - HYPERGLYCAEMIA [None]
